FAERS Safety Report 15301744 (Version 1)
Quarter: 2018Q3

REPORT INFORMATION
  Report Type: Spontaneous
  Country: US (occurrence: US)
  Receive Date: 20180809
  Receipt Date: 20180809
  Transmission Date: 20181010
  Serious: Yes (Hospitalization)
  Sender: FDA-Public Use
  Company Number: None

PATIENT
  Age: 24 Year
  Sex: Male

DRUGS (2)
  1. TYKERB [Suspect]
     Active Substance: LAPATINIB DITOSYLATE
     Indication: COLON CANCER
     Dosage: ?          OTHER FREQUENCY:DAYS 1, 8, AND 15;?
     Route: 048
     Dates: start: 20180726
  2. CAPECITABINE. [Concomitant]
     Active Substance: CAPECITABINE

REACTIONS (3)
  - Spinal cord compression [None]
  - Urinary retention [None]
  - Hypoaesthesia [None]
